FAERS Safety Report 15996132 (Version 3)
Quarter: 2021Q2

REPORT INFORMATION
  Report Type: Spontaneous
  Country: US (occurrence: US)
  Receive Date: 20190222
  Receipt Date: 20210526
  Transmission Date: 20210716
  Serious: Yes (Other)
  Sender: FDA-Public Use
  Company Number: PHEH2019US008104

PATIENT
  Sex: Male

DRUGS (1)
  1. TASIGNA [Suspect]
     Active Substance: NILOTINIB
     Indication: CHRONIC MYELOID LEUKAEMIA
     Dosage: UNK UNK, BID
     Route: 048
     Dates: start: 20170501, end: 201707

REACTIONS (15)
  - Left ventricular dysfunction [Unknown]
  - Pain [Unknown]
  - Tricuspid valve incompetence [Unknown]
  - Proctalgia [Unknown]
  - Diarrhoea [Unknown]
  - Blindness [Unknown]
  - Arteriosclerosis [Unknown]
  - Cerebrovascular accident [Unknown]
  - Anaemia [Unknown]
  - Fatigue [Unknown]
  - Injury [Unknown]
  - Emotional distress [Unknown]
  - Anxiety [Unknown]
  - Pneumonia [Unknown]
  - Carotid artery occlusion [Unknown]
